FAERS Safety Report 5854649-X (Version None)
Quarter: 2008Q3

REPORT INFORMATION
  Report Type: 
  Country: None (occurrence: None)
  Receive Date: 20080822
  Receipt Date: 20071115
  Transmission Date: 20090109
  Serious: No
  Sender: FDA-Public Use
  Company Number: US-ABBOTT-07P-163-0425471-00

PATIENT
  Sex: Female

DRUGS (3)
  1. SYNTHROID [Suspect]
     Indication: THYROID NEOPLASM
     Route: 048
  2. SYNTHROID [Suspect]
     Route: 048
  3. MYLAN [Suspect]
     Indication: THYROID NEOPLASM
     Route: 048

REACTIONS (1)
  - WEIGHT DECREASED [None]
